FAERS Safety Report 5325105-2 (Version None)
Quarter: 2007Q2

REPORT INFORMATION
  Report Type: 
  Country: None (occurrence: None)
  Receive Date: 20070515
  Receipt Date: 20070504
  Transmission Date: 20071010
  Serious: Yes (Other)
  Sender: FDA-Public Use
  Company Number: BR-ROCHE-496456

PATIENT
  Age: 45 Year
  Sex: Female
  Weight: 70 kg

DRUGS (4)
  1. RIVOTRIL [Suspect]
     Indication: PANIC ATTACK
     Route: 048
     Dates: start: 20060701, end: 20070502
  2. RIVOTRIL [Suspect]
     Route: 048
     Dates: start: 20070504
  3. NEOZINE [Concomitant]
     Dosage: GENERIC DRUG NAME REPORTED AS LEVOMEPROMAZINE HYDROCHLORIDE.
     Dates: start: 19940101
  4. DIAZEPAM [Concomitant]
     Dates: start: 19940101

REACTIONS (4)
  - APHTHOUS STOMATITIS [None]
  - DIARRHOEA [None]
  - FEAR [None]
  - HEPATIC CIRRHOSIS [None]
